FAERS Safety Report 4934289-7 (Version None)
Quarter: 2006Q1

REPORT INFORMATION
  Report Type: 
  Country: None (occurrence: None)
  Receive Date: 20060307
  Receipt Date: 20060222
  Transmission Date: 20060701
  Serious: Yes (Hospitalization)
  Sender: FDA-Public Use
  Company Number: CA-ROCHE-437727

PATIENT
  Age: 42 Year
  Sex: Male

DRUGS (16)
  1. CELLCEPT [Suspect]
     Indication: RENAL TRANSPLANT
     Route: 048
  2. CELLCEPT [Suspect]
     Route: 042
  3. ASPIRIN [Concomitant]
     Route: 048
  4. METOPROLOL [Concomitant]
     Route: 048
  5. NITROGLYCERIN [Concomitant]
     Route: 058
  6. CYCLOSPORINE [Concomitant]
     Route: 042
  7. NEXIUM [Concomitant]
     Route: 048
  8. PLAVIX [Concomitant]
     Route: 048
  9. INSULIN [Concomitant]
     Route: 042
  10. VERSED [Concomitant]
     Route: 042
  11. HYDROCORTISONE [Concomitant]
     Route: 042
  12. MORPHINE [Concomitant]
     Route: 058
  13. POTASSIUM CHLORIDE [Concomitant]
     Route: 048
  14. MERREM [Concomitant]
     Route: 042
  15. LIPITOR [Concomitant]
     Route: 048
  16. DEXTROSE [Concomitant]
     Route: 042

REACTIONS (4)
  - MYOCARDIAL INFARCTION [None]
  - PNEUMONITIS [None]
  - PULMONARY FIBROSIS [None]
  - RENAL IMPAIRMENT [None]
